FAERS Safety Report 15724414 (Version 1)
Quarter: 2018Q4

REPORT INFORMATION
  Report Type: Spontaneous
  Country: US (occurrence: US)
  Receive Date: 20181214
  Receipt Date: 20181214
  Transmission Date: 20190205
  Serious: Yes (Other)
  Sender: FDA-Public Use
  Company Number: US-BAYER-2018-226892

PATIENT
  Age: 17 Year
  Sex: Female

DRUGS (2)
  1. MIRENA [Suspect]
     Active Substance: LEVONORGESTREL
     Dosage: 20 MCG/24HR, CONT
     Route: 015
     Dates: start: 20181106
  2. MIRENA [Suspect]
     Active Substance: LEVONORGESTREL

REACTIONS (4)
  - Swelling [Recovered/Resolved]
  - Angioedema [Not Recovered/Not Resolved]
  - Procedural pain [Recovered/Resolved]
  - Eye swelling [Not Recovered/Not Resolved]

NARRATIVE: CASE EVENT DATE: 201811
